FAERS Safety Report 6464457-7 (Version None)
Quarter: 2009Q4

REPORT INFORMATION
  Report Type: 
  Country: None (occurrence: None)
  Receive Date: 20091201
  Receipt Date: 20091116
  Transmission Date: 20100525
  Serious: Yes (Other)
  Sender: FDA-Public Use
  Company Number: DE-AMGEN-QUU373737

PATIENT
  Sex: Female
  Weight: 54 kg

DRUGS (10)
  1. ARANESP [Suspect]
     Indication: DIALYSIS
     Route: 058
     Dates: start: 20060706
  2. FOSRENOL [Concomitant]
     Dates: start: 20070205
  3. AMLODIPINE [Concomitant]
     Dates: start: 20070205
  4. APROVEL [Concomitant]
     Dates: start: 20070507
  5. RADEDORM [Concomitant]
     Dates: start: 20070621
  6. DULCOLAX [Concomitant]
     Dates: start: 20070724
  7. CALCIUM [Concomitant]
     Dates: start: 20071013
  8. RAMIPRIL [Concomitant]
     Dates: start: 20080910
  9. FLECAINIDE ACETATE [Concomitant]
     Dates: start: 20080422
  10. LEVOCARNITINE [Concomitant]
     Dates: start: 20090716

REACTIONS (3)
  - APLASIA PURE RED CELL [None]
  - C-REACTIVE PROTEIN INCREASED [None]
  - DRUG ADMINISTRATION ERROR [None]
